FAERS Safety Report 4762574-0 (Version None)
Quarter: 2005Q3

REPORT INFORMATION
  Report Type: 
  Country: None (occurrence: None)
  Receive Date: 20050907
  Receipt Date: 20050826
  Transmission Date: 20060218
  Serious: Yes (Other)
  Sender: FDA-Public Use
  Company Number: 200516385US

PATIENT
  Sex: Female
  Weight: 100 kg

DRUGS (4)
  1. LANTUS [Suspect]
     Indication: DIABETES MELLITUS
     Dosage: DOSE: UNKNOWN
     Route: 051
     Dates: start: 20050101, end: 20050823
  2. GLUCOPHAGE [Concomitant]
     Route: 048
     Dates: start: 20050826, end: 20050823
  3. ACTOS [Concomitant]
     Dosage: DOSE: UNKNOWN
     Dates: end: 20050823
  4. HUMULIN R [Concomitant]
     Dosage: DOSE: SLIDING SCALE
     Route: 051
     Dates: end: 20050822

REACTIONS (4)
  - BLOOD GLUCOSE DECREASED [None]
  - HYPOGLYCAEMIA [None]
  - INCOHERENT [None]
  - MEMORY IMPAIRMENT [None]
